FAERS Safety Report 8333958-9 (Version None)
Quarter: 2012Q2

REPORT INFORMATION
  Report Type: 
  Country: None (occurrence: None)
  Receive Date: 20120503
  Receipt Date: 20120423
  Transmission Date: 20120825
  Serious: Yes (Hospitalization)
  Sender: FDA-Public Use
  Company Number: US-ACTELION-A-US2012-64529

PATIENT

DRUGS (2)
  1. TRACLEER [Suspect]
     Indication: PULMONARY ARTERIAL HYPERTENSION
     Dosage: UNK
     Route: 048
     Dates: start: 20120314
  2. ASPIRIN [Concomitant]
     Dosage: 81 MG, UNK

REACTIONS (4)
  - TRANSIENT ISCHAEMIC ATTACK [None]
  - HYPOAESTHESIA [None]
  - DISORIENTATION [None]
  - CONFUSIONAL STATE [None]
